FAERS Safety Report 10090498 (Version 1)
Quarter: 2014Q2

REPORT INFORMATION
  Report Type: Spontaneous
  Country: US (occurrence: None)
  Receive Date: 20140417
  Receipt Date: 20140417
  Transmission Date: 20141212
  Serious: Yes (Hospitalization)
  Sender: FDA-Public Use
  Company Number: UTC-047114

PATIENT
  Age: 30 Year
  Sex: Female
  Weight: 74.84 kg

DRUGS (3)
  1. REMODULIN [Suspect]
     Indication: COR PULMONALE CHRONIC
     Dosage: (0.002 UG/KG, 1 IN 1MIN)
     Route: 058
     Dates: start: 20140304
  2. LETAIRIS (AMBRISENTAN) [Concomitant]
  3. REVATIO (SILDENAFIL CITRATE) [Concomitant]

REACTIONS (2)
  - Dehydration [None]
  - Hypotension [None]
